FAERS Safety Report 8119439-6 (Version None)
Quarter: 2012Q1

REPORT INFORMATION
  Report Type: 
  Country: None (occurrence: None)
  Receive Date: 20120207
  Receipt Date: 20120130
  Transmission Date: 20120608
  Serious: Yes (Other)
  Sender: FDA-Public Use
  Company Number: GB-GLAXOSMITHKLINE-B0774968A

PATIENT
  Sex: Female

DRUGS (1)
  1. NICOTINE [Suspect]
     Indication: EX-TOBACCO USER
     Dosage: 14MG PER DAY
     Route: 062
     Dates: start: 20120107, end: 20120110

REACTIONS (3)
  - APPLICATION SITE VESICLES [None]
  - PAIN [None]
  - APPLICATION SITE SWELLING [None]
